FAERS Safety Report 10414095 (Version 2)
Quarter: 2014Q3

REPORT INFORMATION
  Report Type: Spontaneous
  Country: US (occurrence: US)
  Receive Date: 20140827
  Receipt Date: 20140827
  Transmission Date: 20150326
  Serious: No
  Sender: FDA-Public Use
  Company Number: US-ASTRAZENECA-2014SE06887

PATIENT
  Age: 51 Year
  Sex: Female
  Weight: 51.3 kg

DRUGS (4)
  1. COUGH MEDICINE WITH CODEINE [Concomitant]
     Indication: BRONCHITIS
     Dates: start: 201401
  2. UNSPECIFIED MEDICATION [Concomitant]
     Active Substance: UNSPECIFIED INGREDIENT
     Indication: RAPID EYE MOVEMENTS SLEEP ABNORMAL
  3. SYMBICORT [Suspect]
     Active Substance: BUDESONIDE\FORMOTEROL FUMARATE DIHYDRATE
     Dosage: 160/4.5, 2 PUFFS, TWO TIMES A DAY
     Route: 055
     Dates: start: 20140124, end: 20140125
  4. ANTIBIOTIC [Concomitant]
     Active Substance: UNSPECIFIED INGREDIENT
     Indication: BRONCHITIS
     Dates: start: 201401

REACTIONS (3)
  - Drug dose omission [Not Recovered/Not Resolved]
  - Cough [Not Recovered/Not Resolved]
  - Wrong technique in drug usage process [Unknown]

NARRATIVE: CASE EVENT DATE: 201401
